FAERS Safety Report 7478820-9 (Version None)
Quarter: 2011Q2

REPORT INFORMATION
  Report Type: 
  Country: None (occurrence: None)
  Receive Date: 20110513
  Receipt Date: 20110504
  Transmission Date: 20111010
  Serious: Yes (Hospitalization)
  Sender: FDA-Public Use
  Company Number: US-ROCHE-775528

PATIENT
  Sex: Female
  Weight: 79.8 kg

DRUGS (18)
  1. PEMETREXED [Suspect]
     Indication: NON-SMALL CELL LUNG CANCER
     Dosage: DAY 1 EVERY 21 DAYS
     Route: 042
     Dates: start: 20090416, end: 20090617
  2. LIPITOR [Concomitant]
     Dates: start: 20080819
  3. LISINOPRIL [Concomitant]
     Dates: start: 20020101
  4. NITROGLYCERIN [Concomitant]
     Dates: start: 20070507
  5. ZETIA [Concomitant]
     Dates: start: 20080911
  6. AVASTIN [Suspect]
     Dosage: DAY 1 EVERY 21 DAYS
     Route: 042
     Dates: start: 20090708, end: 20110302
  7. PEMETREXED [Suspect]
     Dosage: DAY 1 EVERY 21 DAYS
     Route: 042
     Dates: start: 20090708, end: 20110302
  8. PRILOSEC [Concomitant]
     Dates: start: 20081223
  9. IMDUR [Concomitant]
     Dates: start: 20080109
  10. TRAVATAN [Concomitant]
     Dates: start: 20091109
  11. PLAVIX [Concomitant]
     Dates: start: 20081201
  12. VITAMIN B-12 [Concomitant]
     Dates: start: 20090401
  13. AVASTIN [Suspect]
     Indication: NON-SMALL CELL LUNG CANCER
     Dosage: DAY 1 EVERY 21 DAY
     Route: 042
     Dates: start: 20090416, end: 20090617
  14. CARBOPLATIN [Suspect]
     Indication: NON-SMALL CELL LUNG CANCER
     Dosage: 6 AUC DAY 1 EVERY 21 DAYS
     Route: 042
     Dates: start: 20090416, end: 20090617
  15. FOLIC ACID [Concomitant]
     Dates: start: 20090401
  16. LASIX [Concomitant]
     Dates: start: 20020101
  17. LOPRESSOR [Concomitant]
     Dates: start: 20081201
  18. MAGNESIUM OXIDE [Concomitant]
     Dates: start: 20100928

REACTIONS (2)
  - HYPOGLYCAEMIA [None]
  - HYPOKALAEMIA [None]
